FAERS Safety Report 18729550 (Version 1)
Quarter: 2021Q1

REPORT INFORMATION
  Report Type: Spontaneous
  Country: US (occurrence: US)
  Receive Date: 20210112
  Receipt Date: 20210112
  Transmission Date: 20210419
  Serious: Yes (Other)
  Sender: FDA-Public Use
  Company Number: US-ASTRAZENECA-2021A001819

PATIENT
  Age: 72 Year
  Sex: Female
  Weight: 88.9 kg

DRUGS (6)
  1. DILTIZAEM ER [Concomitant]
     Indication: CARDIAC DISORDER
     Route: 048
     Dates: start: 2012
  2. LEVOTHYROXINE. [Concomitant]
     Active Substance: LEVOTHYROXINE
     Indication: THYROID OPERATION
     Route: 048
  3. FLECAINIDE [Concomitant]
     Active Substance: FLECAINIDE
     Indication: HEART RATE ABNORMAL
     Route: 048
     Dates: start: 20190730
  4. PULMICORT FLEXHALER [Suspect]
     Active Substance: BUDESONIDE
     Indication: DYSPNOEA
     Route: 055
     Dates: start: 2019
  5. XARELTO [Concomitant]
     Active Substance: RIVAROXABAN
     Indication: ATRIAL FIBRILLATION
     Dates: start: 2012
  6. FLECAINIDE [Concomitant]
     Active Substance: FLECAINIDE
     Indication: HEART RATE ABNORMAL
     Dosage: 300 MG WHEN NEEDED TO 50 MG TWICE DAILY BY MOUTH
     Route: 048

REACTIONS (7)
  - Device malfunction [Unknown]
  - Intentional product misuse [Unknown]
  - Atrial fibrillation [Unknown]
  - Dyspnoea [Unknown]
  - Wrong technique in device usage process [Unknown]
  - Product use issue [Unknown]
  - Therapy cessation [Unknown]

NARRATIVE: CASE EVENT DATE: 2019
